FAERS Safety Report 24034647 (Version 1)
Quarter: 2024Q3

REPORT INFORMATION
  Report Type: Report from Study
  Country: US (occurrence: US)
  Receive Date: 20240701
  Receipt Date: 20240701
  Transmission Date: 20241016
  Serious: Yes (Death)
  Sender: BAYER
  Company Number: US-BAYER-2024A093419

PATIENT
  Age: 63 Year
  Sex: Female
  Weight: 55.057 kg

DRUGS (28)
  1. ADEMPAS [Suspect]
     Active Substance: RIOCIGUAT
     Indication: Pulmonary arterial hypertension
     Dosage: UNK
     Dates: start: 20200109
  2. ADEMPAS [Suspect]
     Active Substance: RIOCIGUAT
     Indication: Pulmonary arterial hypertension
     Dosage: 2.5 MG, TID
     Route: 048
  3. MIDODRINE HYDROCHLORIDE [Concomitant]
     Active Substance: MIDODRINE HYDROCHLORIDE
  4. ZYRTEC [Concomitant]
     Active Substance: CETIRIZINE HYDROCHLORIDE
  5. XANAX [Concomitant]
     Active Substance: ALPRAZOLAM
  6. TUMS [Concomitant]
     Active Substance: CALCIUM CARBONATE
  7. PREDNISONE [Concomitant]
     Active Substance: PREDNISONE
  8. POTCHLOR [Concomitant]
  9. ELIQUIS [Concomitant]
     Active Substance: APIXABAN
  10. METHOCARBAMOL [Concomitant]
     Active Substance: METHOCARBAMOL
  11. METOPROLOL TARTRATE [Concomitant]
     Active Substance: METOPROLOL TARTRATE
  12. SODIUM CHLORIDE [Concomitant]
     Active Substance: SODIUM CHLORIDE
  13. SODIUM CHLORIDE [Concomitant]
     Active Substance: SODIUM CHLORIDE
  14. VITAMIN D3 [Concomitant]
     Active Substance: CHOLECALCIFEROL
  15. LASIX [Concomitant]
     Active Substance: FUROSEMIDE
  16. VELETRI [Concomitant]
     Active Substance: EPOPROSTENOL
  17. FLONASE ALLERGY RELIEF [Concomitant]
     Active Substance: FLUTICASONE PROPIONATE
  18. VITAMINS [Concomitant]
     Active Substance: VITAMINS
  19. PROAIR HFA [Concomitant]
     Active Substance: ALBUTEROL SULFATE
  20. AFRIN ALLERGY SINUS NASAL [Concomitant]
     Active Substance: OXYMETAZOLINE HYDROCHLORIDE
  21. DIGOXIN [Concomitant]
     Active Substance: DIGOXIN
  22. OXYGEN [Concomitant]
     Active Substance: OXYGEN
  23. BENADRYL ALLERGY [Concomitant]
     Active Substance: DIPHENHYDRAMINE HYDROCHLORIDE
  24. RECLAST [Concomitant]
     Active Substance: ZOLEDRONIC ACID
  25. MORPHINE SULFATE [Concomitant]
     Active Substance: MORPHINE SULFATE
  26. TYLENOL EXTRA STRENGTH [Concomitant]
     Active Substance: ACETAMINOPHEN
  27. MUCINEX [Concomitant]
     Active Substance: GUAIFENESIN
  28. SYMBICORT [Concomitant]
     Active Substance: BUDESONIDE\FORMOTEROL FUMARATE DIHYDRATE

REACTIONS (1)
  - Death [Fatal]

NARRATIVE: CASE EVENT DATE: 20240622
